FAERS Safety Report 15846918 (Version 1)
Quarter: 2019Q1

REPORT INFORMATION
  Report Type: Spontaneous
  Country: AT (occurrence: AT)
  Receive Date: 20190121
  Receipt Date: 20190121
  Transmission Date: 20190417
  Serious: Yes (Disabling)
  Sender: FDA-Public Use
  Company Number: AT-ROCHE-2241126

PATIENT
  Age: 55 Year
  Sex: Female
  Weight: 47.9 kg

DRUGS (9)
  1. HYDAL RETARD [Concomitant]
     Active Substance: HYDROMORPHONE HYDROCHLORIDE
     Indication: PAIN
     Dosage: 0-0-1
     Route: 065
  2. NOVALGIN (AUSTRIA) [Concomitant]
     Indication: PAIN
     Route: 065
  3. PASPERTIN (AUSTRIA) [Concomitant]
     Indication: NAUSEA
     Dosage: 1-0-0
     Route: 065
  4. AVASTIN [Suspect]
     Active Substance: BEVACIZUMAB
     Indication: BREAST CANCER
     Route: 065
     Dates: start: 20180727, end: 20181127
  5. TAXOL [Suspect]
     Active Substance: PACLITAXEL
     Indication: BREAST CANCER
     Route: 065
     Dates: start: 20180727, end: 20181127
  6. ZOFRAN [Concomitant]
     Active Substance: ONDANSETRON HYDROCHLORIDE
     Route: 065
  7. PANTOLOC [Concomitant]
     Active Substance: PANTOPRAZOLE SODIUM
     Dosage: 1-0-0
     Route: 065
  8. HYDAL [Concomitant]
     Active Substance: HYDROMORPHONE HYDROCHLORIDE
     Indication: PAIN
     Route: 065
  9. DRONABINOL. [Concomitant]
     Active Substance: DRONABINOL

REACTIONS (1)
  - Embolic stroke [Recovered/Resolved with Sequelae]

NARRATIVE: CASE EVENT DATE: 20181227
